FAERS Safety Report 5734390-4 (Version None)
Quarter: 2008Q2

REPORT INFORMATION
  Report Type: 
  Country: None (occurrence: None)
  Receive Date: 20080314
  Receipt Date: 20070501
  Transmission Date: 20081010
  Serious: Yes (Other)
  Sender: FDA-Public Use
  Company Number: HQWYE182126SEP06

PATIENT
  Age: 15 Year
  Sex: Male
  Weight: 63 kg

DRUGS (7)
  1. BENEFIX [Suspect]
     Indication: FACTOR IX DEFICIENCY
     Dosage: PROPHYLACTIC INFUSIONS 2-4 PER WEEK, INTRAVENOUS
     Route: 042
     Dates: end: 20060915
  2. BENEFIX [Suspect]
     Indication: FACTOR IX DEFICIENCY
     Dosage: PROPHYLACTIC INFUSIONS 2-4 PER WEEK, INTRAVENOUS
     Route: 042
     Dates: start: 20070401
  3. LIPITOR [Concomitant]
  4. BENADRYL [Concomitant]
  5. CLARITIN (CLARITIN) [Concomitant]
  6. ACETAMINOPHEN [Concomitant]
  7. HYDROCORTISONE [Concomitant]

REACTIONS (3)
  - DIZZINESS [None]
  - HYPERSENSITIVITY [None]
  - NAUSEA [None]
